FAERS Safety Report 5401425-8 (Version None)
Quarter: 2007Q3

REPORT INFORMATION
  Report Type: 
  Country: None (occurrence: None)
  Receive Date: 20070726
  Receipt Date: 20070712
  Transmission Date: 20080115
  Serious: Yes (Hospitalization)
  Sender: FDA-Public Use
  Company Number: CIP07001413

PATIENT
  Age: 81 Year
  Sex: Female

DRUGS (12)
  1. RISEDRONATE(RISEDRONATE SODIUM) TABLET, 17.5MG [Suspect]
     Indication: OSTEOPOROSIS
     Dosage: 17.5 MG, 1/WEEK, ORAL
     Route: 048
     Dates: start: 20070701
  2. RISEDRONATE SODIUM [Suspect]
     Indication: OSTEOPOROSIS
     Dosage: 2.5 MG, ORAL
     Route: 048
     Dates: start: 20070227, end: 20070630
  3. LANSOPRAZOLE [Concomitant]
  4. NORVASC [Concomitant]
  5. ASPIRIN [Concomitant]
  6. ENALAPRIL MALEATE [Concomitant]
  7. GOSYAZINKIGAN (HERBAL EXTRACT NOS) [Concomitant]
  8. MUCOSTA (REBAMIPIDE) [Concomitant]
  9. DEPAS (ETIZOLAM) [Concomitant]
  10. MAGMITT (MAGNESIUM OXIDE) [Concomitant]
  11. VOLTAREN [Concomitant]
  12. ELCITONIN (ELCATONIN) [Concomitant]

REACTIONS (9)
  - BLOOD PRESSURE DECREASED [None]
  - DIZZINESS [None]
  - HEADACHE [None]
  - NAUSEA [None]
  - PYREXIA [None]
  - SHOCK [None]
  - SUDDEN HEARING LOSS [None]
  - TINNITUS [None]
  - VOMITING [None]
